FAERS Safety Report 8107035-6 (Version None)
Quarter: 2012Q1

REPORT INFORMATION
  Report Type: 
  Country: None (occurrence: None)
  Receive Date: 20120202
  Receipt Date: 20120125
  Transmission Date: 20120608
  Serious: Yes (Hospitalization)
  Sender: FDA-Public Use
  Company Number: US-BAYER-2011-074705

PATIENT
  Age: 40 Year
  Sex: Female
  Weight: 95.238 kg

DRUGS (2)
  1. IBUPROFEN [Concomitant]
  2. YAZ [Suspect]
     Dosage: UNK
     Dates: start: 20080101, end: 20080301

REACTIONS (3)
  - PAIN [None]
  - INJURY [None]
  - DEEP VEIN THROMBOSIS [None]
